FAERS Safety Report 9034867 (Version 1)
Quarter: 2013Q1

REPORT INFORMATION
  Report Type: Spontaneous
  Country: DK (occurrence: None)
  Receive Date: 20130116
  Receipt Date: 20130116
  Transmission Date: 20140127
  Serious: Yes (Hospitalization)
  Sender: FDA-Public Use
  Company Number: 2013MA000334

PATIENT
  Age: 70 Year
  Sex: Male

DRUGS (8)
  1. BUTALBITAL, ASPIRIN (ACETYLSALICYCLIC ACID) AND CAFFENINE TABLETS USP 50MG/325MG/40MG (AELLC) (BUTALBITAL, ASPIRIN AND CAFFEINE) [Suspect]
     Indication: INTENTIONAL OVERDOSE
     Route: 048
     Dates: start: 20121107, end: 20121107
  2. TRIAZOLAM (TRIAZOLAM) [Suspect]
     Indication: INTENTIONAL OVERDOSE
     Route: 048
     Dates: start: 20121107, end: 20121107
  3. QUINAPRIL/HYDROCHLOROTHIAZIDE [Concomitant]
  4. TORVAST [Concomitant]
  5. CARVEDILOL ACTAVIS [Concomitant]
  6. XERISTAR [Concomitant]
  7. MRTAZAPIN ACTAVIS [Concomitant]
  8. DERMATRANS [Concomitant]

REACTIONS (5)
  - Sopor [None]
  - Hypokalaemia [None]
  - Rhonchi [None]
  - Intentional overdose [None]
  - Heart rate decreased [None]
